FAERS Safety Report 5615525-0 (Version None)
Quarter: 2008Q1

REPORT INFORMATION
  Report Type: 
  Country: None (occurrence: None)
  Receive Date: 20080204
  Receipt Date: 20080204
  Transmission Date: 20080703
  Serious: Yes (Other)
  Sender: FDA-Public Use
  Company Number: None

PATIENT
  Age: 32 Year
  Sex: Female
  Weight: 58.9676 kg

DRUGS (2)
  1. FLAGYL [Suspect]
     Indication: VAGINITIS BACTERIAL
     Dosage: 1 TWICE A DAY PO
     Route: 048
     Dates: start: 20061206, end: 20061213
  2. FLAGYL [Suspect]
     Indication: VAGINITIS BACTERIAL
     Dosage: 1 TWICE A DAY PO
     Route: 048
     Dates: start: 20080130, end: 20080131

REACTIONS (1)
  - DYSPNOEA [None]
